FAERS Safety Report 25606605 (Version 1)
Quarter: 2025Q3

REPORT INFORMATION
  Report Type: Spontaneous
  Country: US (occurrence: US)
  Receive Date: 20250725
  Receipt Date: 20250725
  Transmission Date: 20251021
  Serious: Yes (Life-Threatening, Hospitalization, Other)
  Sender: AMGEN
  Company Number: US-AMGEN-USASP2025141480

PATIENT
  Age: 52 Year
  Sex: Female

DRUGS (6)
  1. ADALIMUMAB [Suspect]
     Active Substance: ADALIMUMAB
     Indication: Rheumatoid arthritis
     Route: 065
  2. MEROPENEM [Concomitant]
     Active Substance: MEROPENEM
  3. CLINDAMYCIN [Concomitant]
     Active Substance: CLINDAMYCIN
  4. CEFTRIAXONE [Concomitant]
     Active Substance: CEFTRIAXONE
  5. VANCOMYCIN [Concomitant]
     Active Substance: VANCOMYCIN
  6. HUMAN IMMUNOGLOBULIN G [Concomitant]
     Active Substance: HUMAN IMMUNOGLOBULIN G
     Route: 040

REACTIONS (10)
  - Pneumococcal sepsis [Unknown]
  - Toxic shock syndrome [Unknown]
  - Acute kidney injury [Unknown]
  - Livedo reticularis [Unknown]
  - Metabolic encephalopathy [Unknown]
  - Infarction [Unknown]
  - Thrombotic microangiopathy [Unknown]
  - Atrial fibrillation [Unknown]
  - Pleural effusion [Unknown]
  - Acute respiratory distress syndrome [Unknown]
